FAERS Safety Report 10729107 (Version 1)
Quarter: 2015Q1

REPORT INFORMATION
  Report Type: Spontaneous
  Country: US (occurrence: None)
  Receive Date: 20150120
  Receipt Date: 20150120
  Transmission Date: 20150721
  Serious: Yes (Hospitalization)
  Sender: FDA-Public Use
  Company Number: None

PATIENT
  Age: 14 Year
  Sex: Female
  Weight: 52.16 kg

DRUGS (1)
  1. LAMICTAL [Suspect]
     Active Substance: LAMOTRIGINE
     Indication: BIPOLAR DISORDER
     Dosage: 50 MG 1 ONCE DAILY TAKEN BY MOUTH APPROX 2 WEEKS
     Route: 048

REACTIONS (4)
  - Rash [None]
  - Ocular icterus [None]
  - Platelet count decreased [None]
  - Liver injury [None]

NARRATIVE: CASE EVENT DATE: 20120705
